FAERS Safety Report 16570626 (Version 1)
Quarter: 2019Q3

REPORT INFORMATION
  Report Type: Spontaneous
  Country: CN (occurrence: CN)
  Receive Date: 20190715
  Receipt Date: 20190715
  Transmission Date: 20191004
  Serious: Yes (Hospitalization, Other)
  Sender: FDA-Public Use
  Company Number: CN-GLAXOSMITHKLINE-CN2019APC083415

PATIENT

DRUGS (3)
  1. LEVETIRACETAM. [Concomitant]
     Active Substance: LEVETIRACETAM
     Indication: EPILEPSY
     Dosage: 1.5 ML,2 TIMES DAILY
     Route: 048
     Dates: start: 201705
  2. VALPROATE SODIUM. [Concomitant]
     Active Substance: VALPROATE SODIUM
     Indication: EPILEPSY
     Dosage: 0.25 MG, TWICE DAILY
     Route: 048
     Dates: start: 201705
  3. LAMICTAL [Suspect]
     Active Substance: LAMOTRIGINE
     Indication: SEIZURE
     Dosage: UNK
     Route: 048

REACTIONS (21)
  - Face oedema [Recovered/Resolved]
  - Cough [Recovered/Resolved]
  - Portal vein dilatation [Recovered/Resolved]
  - Pleural effusion [Unknown]
  - Gallbladder enlargement [Recovered/Resolved]
  - Lymphadenopathy [Recovered/Resolved]
  - Pruritus [Recovered/Resolved]
  - Rash maculo-papular [Recovered/Resolved]
  - Hepatosplenomegaly [Recovered/Resolved]
  - Rash generalised [Recovered/Resolved]
  - Hypoproteinaemia [Recovered/Resolved]
  - Platelet count decreased [Recovered/Resolved]
  - Hepatic function abnormal [Recovered/Resolved]
  - Drug reaction with eosinophilia and systemic symptoms [Recovered/Resolved]
  - Pyrexia [Recovered/Resolved]
  - Condition aggravated [Unknown]
  - Lung infection [Recovered/Resolved]
  - Eosinophil count increased [Recovered/Resolved]
  - Eyelid oedema [Recovered/Resolved]
  - Sepsis [Recovered/Resolved]
  - Erythema multiforme [Recovered/Resolved]
